FAERS Safety Report 5094209-4 (Version None)
Quarter: 2006Q3

REPORT INFORMATION
  Report Type: 
  Country: None (occurrence: None)
  Receive Date: 20060830
  Receipt Date: 20060830
  Transmission Date: 20061208
  Serious: No
  Sender: FDA-Public Use
  Company Number: None

PATIENT
  Sex: Female

DRUGS (5)
  1. ACTONEL [Suspect]
     Indication: OSTEOPENIA
     Dosage: 35 MG 1Q WEEK PO [ONLY ONE DOSE TAKEN]
     Route: 048
  2. ACTONEL [Suspect]
     Indication: OSTEOPOROSIS
     Dosage: 35 MG 1Q WEEK PO [ONLY ONE DOSE TAKEN]
     Route: 048
  3. MIDRIN [Concomitant]
  4. TOPROL-XL [Concomitant]
  5. LEXAPRO [Concomitant]

REACTIONS (3)
  - BACK PAIN [None]
  - CHEST PAIN [None]
  - PAIN [None]
